FAERS Safety Report 7642056-9 (Version None)
Quarter: 2011Q3

REPORT INFORMATION
  Report Type: 
  Country: None (occurrence: None)
  Receive Date: 20110728
  Receipt Date: 20110721
  Transmission Date: 20111222
  Serious: Yes (Death)
  Sender: FDA-Public Use
  Company Number: JP-ELI_LILLY_AND_COMPANY-JP201107003588

PATIENT
  Age: 62 Year
  Sex: Male

DRUGS (3)
  1. ALIMTA [Suspect]
     Indication: LUNG NEOPLASM MALIGNANT
     Dosage: UNK
     Route: 042
  2. CYANOCOBALAMIN [Concomitant]
  3. PANVITAN [Concomitant]
     Route: 048

REACTIONS (3)
  - PERFORMANCE STATUS DECREASED [None]
  - DECREASED APPETITE [None]
  - DEATH [None]
